FAERS Safety Report 9929049 (Version 4)
Quarter: 2014Q2

REPORT INFORMATION
  Report Type: Spontaneous
  Country: US (occurrence: US)
  Receive Date: 20140227
  Receipt Date: 20140417
  Transmission Date: 20141212
  Serious: Yes (Hospitalization)
  Sender: FDA-Public Use
  Company Number: US-MERCK-1402USA011445

PATIENT
  Age: 87 Year
  Sex: Male

DRUGS (1)
  1. TEMODAR [Suspect]
     Indication: NON-SMALL CELL LUNG CANCER
     Dosage: UNK
     Route: 048
     Dates: start: 201309

REACTIONS (2)
  - Burn oesophageal [Unknown]
  - Asthenia [Unknown]
